FAERS Safety Report 9390333 (Version 3)
Quarter: 2013Q4

REPORT INFORMATION
  Report Type: Spontaneous
  Country: FR (occurrence: FR)
  Receive Date: 20130709
  Receipt Date: 20131217
  Transmission Date: 20140711
  Serious: Yes (Hospitalization, Other)
  Sender: FDA-Public Use
  Company Number: FR-AMGEN-FRASP2013047550

PATIENT
  Age: 44 Year
  Sex: Female
  Weight: 46 kg

DRUGS (4)
  1. ENBREL [Suspect]
     Indication: RHEUMATOID ARTHRITIS
     Dosage: 50 MG, WEEKLY
     Route: 065
     Dates: start: 20130114, end: 201307
  2. DAFALGAN CODEINE [Concomitant]
     Dosage: UNK
     Route: 048
     Dates: start: 20130330, end: 201304
  3. PREDNISOLONE [Concomitant]
     Dosage: UNK
     Route: 048
     Dates: start: 20130330, end: 201304
  4. DAFALGAN [Concomitant]
     Dosage: 1 G, UNK
     Route: 048
     Dates: start: 20130403, end: 201304

REACTIONS (1)
  - VIIth nerve paralysis [Recovered/Resolved]
